FAERS Safety Report 25113960 (Version 3)
Quarter: 2025Q2

REPORT INFORMATION
  Report Type: Spontaneous
  Country: DE (occurrence: DE)
  Receive Date: 20250324
  Receipt Date: 20250423
  Transmission Date: 20250717
  Serious: Yes (Hospitalization)
  Sender: TAKEDA
  Company Number: DE-TAKEDA-2025TUS028120

PATIENT
  Age: 40 Year
  Sex: Male

DRUGS (3)
  1. LISDEXAMFETAMINE DIMESYLATE [Interacting]
     Active Substance: LISDEXAMFETAMINE DIMESYLATE
     Indication: Product used for unknown indication
     Dosage: 50 MILLIGRAM, QD
  2. BUPROPION [Interacting]
     Active Substance: BUPROPION
     Indication: Product used for unknown indication
  3. BUPROPION [Interacting]
     Active Substance: BUPROPION

REACTIONS (5)
  - Illness [Unknown]
  - Product use issue [Unknown]
  - Tinnitus [Not Recovered/Not Resolved]
  - Depression [Unknown]
  - Drug interaction [Unknown]
